FAERS Safety Report 10098000 (Version 1)
Quarter: 2014Q2

REPORT INFORMATION
  Report Type: Spontaneous
  Country: US (occurrence: US)
  Receive Date: 20140423
  Receipt Date: 20140423
  Transmission Date: 20141212
  Serious: Yes (Other)
  Sender: FDA-Public Use
  Company Number: US-AMGEN INC.-USASP2014028909

PATIENT
  Age: 46 Year
  Sex: Female
  Weight: 68.03 kg

DRUGS (6)
  1. ENBREL [Suspect]
     Indication: PRODUCT USED FOR UNKNOWN INDICATION
     Dosage: 50 MG, QWK
     Route: 058
  2. SYNTHROID [Concomitant]
     Dosage: 100 MUG, UNK
  3. LEFLUNOMIDE [Concomitant]
     Dosage: 10 MG, UNK
  4. CYPROHEPTADIN [Concomitant]
     Dosage: 4 MG, UNK
  5. PRILOSEC                           /00661201/ [Concomitant]
     Dosage: 10 MG, UNK
  6. MULTICAPS [Concomitant]
     Dosage: UNK

REACTIONS (2)
  - Pneumonia [Recovered/Resolved]
  - Burning sensation [Recovered/Resolved]
